FAERS Safety Report 9286902 (Version 3)
Quarter: 2013Q2

REPORT INFORMATION
  Report Type: Spontaneous
  Country: PL (occurrence: PL)
  Receive Date: 20130513
  Receipt Date: 20130524
  Transmission Date: 20140414
  Serious: Yes (Death, Hospitalization, Other)
  Sender: FDA-Public Use
  Company Number: PL-VERTEX PHARMACEUTICALS INC-2013-005958

PATIENT
  Age: 59 Year
  Sex: Female
  Weight: 117 kg

DRUGS (8)
  1. INCIVO [Suspect]
     Indication: HEPATIC CIRRHOSIS
     Dosage: 2250 MG, QD
     Route: 048
     Dates: start: 20120413, end: 20120515
  2. INCIVO [Suspect]
     Indication: HEPATITIS C
  3. INCIVO [Suspect]
     Indication: CHRONIC HEPATITIS C
  4. REBETOL [Suspect]
     Indication: HEPATITIS C
     Dosage: DOSAGE FORM: UNSPECIFIED
     Route: 065
     Dates: start: 20120413, end: 20120515
  5. REBETOL [Suspect]
     Dosage: DOSAGE FORM: UNSPECIFIED
     Route: 065
  6. PEGINTRON [Suspect]
     Indication: HEPATITIS C
     Dosage: DOSAGE FORM: UNSPECIFIED
     Route: 065
     Dates: start: 20120413, end: 20120415
  7. PEGINTRON [Suspect]
     Dosage: DOSAGE FORM: UNSPECIFIED
     Route: 065
  8. INSULIN [Concomitant]
     Indication: DIABETES MELLITUS
     Dosage: DOSAGE FORM: UNKNOWN
     Route: 065

REACTIONS (7)
  - Diabetes mellitus [Unknown]
  - Death [Fatal]
  - Pancytopenia [Unknown]
  - Hypoglycaemia [Unknown]
  - Pyrexia [Unknown]
  - Asthenia [Unknown]
  - Decreased appetite [Unknown]
